FAERS Safety Report 9762002 (Version 1)
Quarter: 2013Q4

REPORT INFORMATION
  Report Type: Spontaneous
  Country: US (occurrence: US)
  Receive Date: 20131216
  Receipt Date: 20131216
  Transmission Date: 20140711
  Serious: No
  Sender: FDA-Public Use
  Company Number: US-BIOGENIDEC-2013BI102881

PATIENT
  Sex: Female

DRUGS (8)
  1. TECFIDERA [Suspect]
     Indication: MULTIPLE SCLEROSIS
     Route: 048
     Dates: start: 201307
  2. BABY ASPIRIN [Concomitant]
  3. NALTREXONE HCL [Concomitant]
  4. COQ-10 [Concomitant]
  5. FISH OIL [Concomitant]
  6. D2000 ULTRA STRENGTH [Concomitant]
  7. AMITRIPTYLINE HCL [Concomitant]
  8. MICRIGESTIN FE [Concomitant]

REACTIONS (2)
  - Headache [Unknown]
  - White blood cell count increased [Unknown]
